FAERS Safety Report 8162894 (Version 5)
Quarter: 2013Q2

REPORT INFORMATION
  Report Type: Spontaneous
  Country: US (occurrence: US)
  Receive Date: 20110930
  Receipt Date: 20130613
  Transmission Date: 20140414
  Serious: Yes (Hospitalization)
  Sender: FDA-Public Use
  Company Number: US-BAYER-2011-091593

PATIENT
  Age: 33 Year
  Sex: Female
  Weight: 90.7 kg

DRUGS (3)
  1. YAZ [Suspect]
  2. YAZ [Suspect]
     Dosage: UNK
     Dates: start: 200804, end: 200903
  3. TOPIRAMATE [Concomitant]
     Indication: CONVULSION

REACTIONS (8)
  - Cerebrovascular accident [None]
  - Cerebral infarction [Recovered/Resolved with Sequelae]
  - Injury [None]
  - Pain [None]
  - General physical health deterioration [None]
  - Anxiety [None]
  - Anhedonia [None]
  - Emotional distress [None]
